FAERS Safety Report 5681113-3 (Version None)
Quarter: 2008Q1

REPORT INFORMATION
  Report Type: 
  Country: None (occurrence: None)
  Receive Date: 20080325
  Receipt Date: 20080205
  Transmission Date: 20080703
  Serious: Yes (Life-Threatening, Other)
  Sender: FDA-Public Use
  Company Number: 2008AL001452

PATIENT
  Age: 38 Year
  Sex: Female

DRUGS (4)
  1. AMLODIPINE BESYLATE [Suspect]
     Dosage: 10 MG; PO
     Route: 048
     Dates: start: 20050609, end: 20080118
  2. VALSARTAN [Concomitant]
  3. BENDROFLUMETHIAZIDE [Concomitant]
  4. CODEINE SUL TAB [Concomitant]

REACTIONS (3)
  - ELECTROCARDIOGRAM QT PROLONGED [None]
  - PALPITATIONS [None]
  - VENTRICULAR EXTRASYSTOLES [None]
